FAERS Safety Report 22345622 (Version 1)
Quarter: 2023Q2

REPORT INFORMATION
  Report Type: Report from Study
  Country: US (occurrence: US)
  Receive Date: 20230519
  Receipt Date: 20230519
  Transmission Date: 20230721
  Serious: Yes (Hospitalization, Other)
  Sender: FDA-Public Use
  Company Number: US-002147023-NVSC2023US017067

PATIENT
  Age: 3 Year
  Sex: Female
  Weight: 14.1 kg

DRUGS (18)
  1. MAS-825 [Suspect]
     Active Substance: MAS-825
     Indication: Still^s disease
     Dosage: 140 MG (TWO WEEKS) (STRENGTH: 10 MG/ML)
     Route: 042
     Dates: start: 20230104, end: 20230117
  2. TACROLIMUS [Suspect]
     Active Substance: TACROLIMUS
     Indication: Immunosuppression
     Dosage: UNK
     Route: 065
  3. TACROLIMUS [Suspect]
     Active Substance: TACROLIMUS
     Indication: Still^s disease
     Dosage: 0.5 MG, BID
     Route: 065
     Dates: start: 20221025
  4. TACROLIMUS [Suspect]
     Active Substance: TACROLIMUS
     Indication: Haemophagocytic lymphohistiocytosis
     Dosage: 0.6 MG, BID
     Route: 048
     Dates: start: 20221208
  5. TACROLIMUS [Suspect]
     Active Substance: TACROLIMUS
     Dosage: 0.6 MG, BID
     Route: 065
     Dates: start: 20230320, end: 20230425
  6. PREDNISOLONE [Concomitant]
     Active Substance: PREDNISOLONE
     Indication: Immunosuppression
     Dosage: 24 MG, QD
     Route: 065
  7. PREDNISOLONE [Concomitant]
     Active Substance: PREDNISOLONE
     Dosage: 18 MG, QD
     Route: 065
     Dates: start: 2020, end: 20230117
  8. PREDNISOLONE [Concomitant]
     Active Substance: PREDNISOLONE
     Dosage: 15 MG, QD
     Route: 065
     Dates: start: 2021
  9. PENTAMIDINE [Concomitant]
     Active Substance: PENTAMIDINE
     Indication: Product used for unknown indication
     Dosage: UNK
     Route: 065
     Dates: start: 20230110
  10. PENTAMIDINE [Concomitant]
     Active Substance: PENTAMIDINE
     Dosage: 56 MG (4 WEEKS)
     Route: 042
  11. FERROUS SULFATE [Concomitant]
     Active Substance: FERROUS SULFATE
     Indication: Product used for unknown indication
     Dosage: 325 MG
     Route: 065
  12. VALGANCICLOVIR HYDROCHLORIDE [Concomitant]
     Active Substance: VALGANCICLOVIR HYDROCHLORIDE
     Indication: Product used for unknown indication
     Dosage: 250 MG, QD
     Route: 065
  13. CHOLECALCIFEROL [Concomitant]
     Active Substance: CHOLECALCIFEROL
     Indication: Product used for unknown indication
     Dosage: 400 IU, QD
     Route: 065
  14. FLUCONAZOLE [Concomitant]
     Active Substance: FLUCONAZOLE
     Indication: Product used for unknown indication
     Dosage: 75 MG, QD
     Route: 065
  15. FAMOTIDINE [Concomitant]
     Active Substance: FAMOTIDINE
     Indication: Product used for unknown indication
     Dosage: 8 MG, BID
     Route: 065
  16. OMEPRAZOLE [Concomitant]
     Active Substance: OMEPRAZOLE
     Indication: Product used for unknown indication
     Dosage: 10 MG, QD
     Route: 065
  17. POLYETHYLENE GLYCOL [Concomitant]
     Active Substance: POLYETHYLENE GLYCOL
     Indication: Product used for unknown indication
     Dosage: 8.5 MG, PRN
     Route: 065
  18. TOFACITINIB [Concomitant]
     Active Substance: TOFACITINIB
     Indication: Haemophagocytic lymphohistiocytosis
     Dosage: 5 MG, BID
     Route: 065
     Dates: start: 20230221

REACTIONS (16)
  - Cytopenia [Not Recovered/Not Resolved]
  - Pyrexia [Recovering/Resolving]
  - Mycobacterium avium complex infection [Unknown]
  - Leukopenia [Recovering/Resolving]
  - Mycobacterial infection [Not Recovered/Not Resolved]
  - Hypertension [Unknown]
  - Platelet count abnormal [Not Recovered/Not Resolved]
  - Blood creatinine increased [Unknown]
  - Splenomegaly [Unknown]
  - Fibrosis [Unknown]
  - Cough [Unknown]
  - Pain [Unknown]
  - Anaemia [Not Recovered/Not Resolved]
  - C-reactive protein increased [Recovering/Resolving]
  - Interleukin-2 receptor increased [Unknown]
  - Hyperferritinaemia [Not Recovered/Not Resolved]

NARRATIVE: CASE EVENT DATE: 20221206
